FAERS Safety Report 19796593 (Version 4)
Quarter: 2021Q4

REPORT INFORMATION
  Report Type: Spontaneous
  Country: US (occurrence: US)
  Receive Date: 20210907
  Receipt Date: 20211005
  Transmission Date: 20220303
  Serious: Yes (Hospitalization, Other)
  Sender: FDA-Public Use
  Company Number: US-VIIV HEALTHCARE ULC-US2021AMR187110

PATIENT
  Age: 43 Year
  Sex: Female

DRUGS (9)
  1. VOCABRIA [Suspect]
     Active Substance: CABOTEGRAVIR SODIUM
     Indication: Product used for unknown indication
     Dosage: UNK
     Route: 048
     Dates: start: 20210806, end: 20210827
  2. VISTARIL [Suspect]
     Active Substance: HYDROXYZINE PAMOATE
     Indication: Mouth ulceration
     Dosage: UNK
     Dates: start: 20210828, end: 20210830
  3. VISTARIL [Suspect]
     Active Substance: HYDROXYZINE PAMOATE
     Indication: Chills
  4. VISTARIL [Suspect]
     Active Substance: HYDROXYZINE PAMOATE
     Indication: Ocular hyperaemia
  5. VALACYCLOVIR [Suspect]
     Active Substance: VALACYCLOVIR HYDROCHLORIDE
     Indication: Product used for unknown indication
     Dosage: UNK
  6. EDURANT [Suspect]
     Active Substance: RILPIVIRINE HYDROCHLORIDE
     Indication: Product used for unknown indication
     Dosage: UNK
     Route: 048
     Dates: start: 20210806, end: 20210827
  7. DEXAMETHASONE [Concomitant]
     Active Substance: DEXAMETHASONE
     Indication: Oedema
     Dosage: UNK
     Dates: start: 20210830
  8. ISENTRESS [Concomitant]
     Active Substance: RALTEGRAVIR POTASSIUM
     Indication: Product used for unknown indication
     Dosage: UNK
     Dates: start: 2020, end: 2021
  9. TRUVADA [Concomitant]
     Active Substance: EMTRICITABINE\TENOFOVIR DISOPROXIL FUMARATE
     Indication: Product used for unknown indication
     Dosage: UNK
     Dates: start: 2020, end: 2021

REACTIONS (38)
  - Periorbital oedema [Recovering/Resolving]
  - Speech disorder [Unknown]
  - Dysphagia [Unknown]
  - Hypophagia [Unknown]
  - Lip swelling [Unknown]
  - Tongue ulceration [Unknown]
  - Tongue blistering [Unknown]
  - Stevens-Johnson syndrome [Unknown]
  - Erythema multiforme [Unknown]
  - Mouth ulceration [Not Recovered/Not Resolved]
  - Chills [Not Recovered/Not Resolved]
  - Ocular hyperaemia [Not Recovered/Not Resolved]
  - Oral pain [Recovered/Resolved]
  - Rash [Recovered/Resolved]
  - Vaginal lesion [Unknown]
  - Mucosal disorder [Unknown]
  - Blister [Recovered/Resolved]
  - Oral candidiasis [Unknown]
  - Herpes simplex [Unknown]
  - Bacterial vaginosis [Unknown]
  - Chapped lips [Recovered/Resolved]
  - Lip ulceration [Unknown]
  - Vaginal ulceration [Unknown]
  - Dyskinesia [Unknown]
  - Condition aggravated [Unknown]
  - Vaginal discharge [Unknown]
  - Mucosal erosion [Unknown]
  - Palatal disorder [Unknown]
  - Impetigo [Unknown]
  - Adverse drug reaction [Unknown]
  - Stomatitis [Unknown]
  - Lip erythema [Unknown]
  - Pharyngeal erythema [Unknown]
  - Tenderness [Unknown]
  - Mucosal excoriation [Unknown]
  - Conjunctivitis [Unknown]
  - Vaginal infection [Unknown]
  - Drug ineffective [Unknown]

NARRATIVE: CASE EVENT DATE: 20210820
